FAERS Safety Report 9380252 (Version 2)
Quarter: 2013Q3

REPORT INFORMATION
  Report Type: Spontaneous
  Country: US (occurrence: US)
  Receive Date: 20130702
  Receipt Date: 20130725
  Transmission Date: 20140515
  Serious: No
  Sender: FDA-Public Use
  Company Number: US-ROXANE LABORATORIES, INC.-2013-RO-01054RO

PATIENT
  Sex: Female
  Weight: 79 kg

DRUGS (16)
  1. METHOTREXATE [Suspect]
     Indication: ARTHRITIS
     Dosage: 1.0714 MG
     Route: 048
     Dates: start: 20130408, end: 20130506
  2. METHOTREXATE [Suspect]
     Indication: PSORIATIC ARTHROPATHY
     Dosage: 2.1429 MG
     Route: 048
     Dates: start: 20130506, end: 20130701
  3. METHOTREXATE [Suspect]
     Indication: SYSTEMIC LUPUS ERYTHEMATOSUS
  4. FOLIC ACID [Concomitant]
     Dates: end: 20130701
  5. POTASSIUM CL [Concomitant]
  6. VITAMIN D [Concomitant]
  7. HIPREX [Concomitant]
     Dosage: 2 G
  8. ACIDOPHILUS [Concomitant]
  9. VITAMIN C [Concomitant]
     Dosage: 1000 MG
  10. CALTRATE [Concomitant]
  11. CORTISONE 10 [Concomitant]
     Indication: ABSCESS LIMB
  12. CLOBEX [Concomitant]
     Indication: ABSCESS LIMB
  13. LEVOTHYROXINE [Concomitant]
  14. LOSARTAN [Concomitant]
  15. HYDROCHLOROTHIAZIDE [Concomitant]
     Dosage: 12.5 MG
  16. PREDNISONE [Concomitant]
     Dosage: 5 MG
     Dates: start: 20130506

REACTIONS (7)
  - Chest discomfort [Not Recovered/Not Resolved]
  - Muscle tightness [Not Recovered/Not Resolved]
  - Musculoskeletal stiffness [Not Recovered/Not Resolved]
  - Sensation of heaviness [Not Recovered/Not Resolved]
  - Drug ineffective [Not Recovered/Not Resolved]
  - Product quality issue [Unknown]
  - Erythema [Unknown]
